FAERS Safety Report 16648607 (Version 1)
Quarter: 2019Q3

REPORT INFORMATION
  Report Type: Spontaneous
  Country: US (occurrence: US)
  Receive Date: 20190730
  Receipt Date: 20190730
  Transmission Date: 20191004
  Serious: Yes (Hospitalization, Other)
  Sender: FDA-Public Use
  Company Number: US-ALEXION-A201911331

PATIENT
  Age: 11 Year
  Sex: Male

DRUGS (3)
  1. SOLIRIS [Suspect]
     Active Substance: ECULIZUMAB
     Indication: ESCHERICHIA TEST POSITIVE
  2. SOLIRIS [Suspect]
     Active Substance: ECULIZUMAB
     Indication: OFF LABEL USE
  3. SOLIRIS [Suspect]
     Active Substance: ECULIZUMAB
     Indication: HAEMOLYTIC URAEMIC SYNDROME
     Dosage: UNK
     Route: 065

REACTIONS (7)
  - Pyrexia [Unknown]
  - Renal atrophy [Not Recovered/Not Resolved]
  - Off label use [Unknown]
  - Antithrombin III deficiency [Unknown]
  - Neurological decompensation [Not Recovered/Not Resolved]
  - Thrombosis in device [Unknown]
  - Anuria [Not Recovered/Not Resolved]
